FAERS Safety Report 15429052 (Version 3)
Quarter: 2019Q1

REPORT INFORMATION
  Report Type: Spontaneous
  Country: US (occurrence: US)
  Receive Date: 20180926
  Receipt Date: 20190318
  Transmission Date: 20190417
  Serious: Yes (Disabling)
  Sender: FDA-Public Use
  Company Number: US-PFIZER INC-2018383177

PATIENT
  Age: 46 Year
  Sex: Female

DRUGS (54)
  1. SYNTHROID [Concomitant]
     Active Substance: LEVOTHYROXINE SODIUM
     Dosage: UNK
     Route: 048
  2. SYSTANE ULTRA [Concomitant]
     Active Substance: POLYETHYLENE GLYCOL 400\PROPYLENE GLYCOL
     Dosage: 2 DF, 2X/DAY (2 DROPS/EA EYE/2X DAY; DROPS)
     Route: 047
  3. DETROL [Concomitant]
     Active Substance: TOLTERODINE TARTRATE
     Dosage: 2 MG, 1X/DAY
     Route: 048
  4. VITAMIN D [Concomitant]
     Active Substance: CHOLECALCIFEROL
     Dosage: 5000 IU, 1X/DAY
     Route: 048
     Dates: start: 20150819
  5. CLONAZEPAM. [Concomitant]
     Active Substance: CLONAZEPAM
     Dosage: 2 MG, 3X/DAY
     Route: 048
  6. NEOSPORIN [BACITRACIN ZINC;NEOMYCIN SULFATE;POLYMYXIN B SULFATE] [Concomitant]
     Indication: ANALGESIC THERAPY
     Dosage: UNK
  7. NITROGLYCERIN. [Concomitant]
     Active Substance: NITROGLYCERIN
     Dosage: 0.2 MG, 1X/DAY  (BOTH FEET ANKLE/TOES 1 PATCH/24 HRS; PATCH)
     Dates: start: 20180730
  8. ASPERCREME WITH LIDOCAINE [Concomitant]
     Active Substance: LIDOCAINE
     Indication: ANALGESIC THERAPY
     Dosage: UNK
     Dates: start: 20170526
  9. VITAMIN B COMPLEX [Concomitant]
     Active Substance: CYANOCOBALAMIN\DEXPANTHENOL\NIACINAMIDE\PYRIDOXINE HYDROCHLORIDE\RIBOFLAVIN 5^-PHOSPHATE SODIUM\THIAMINE HYDROCHLORIDE\VITAMIN B COMPLEX
     Dosage: UNK , 1X/DAY
     Route: 048
     Dates: start: 20180730
  10. BENADRYL ORIGINAL STRENGTH ITCH STOPPING [Concomitant]
     Active Substance: DIPHENHYDRAMINE HYDROCHLORIDE\ZINC ACETATE
     Dosage: UNK
  11. HUMALOG [Concomitant]
     Active Substance: INSULIN LISPRO
     Dosage: UNK
     Dates: start: 20161206
  12. COZAAR [Concomitant]
     Active Substance: LOSARTAN POTASSIUM
     Dosage: 50 MG, 1X/DAY
     Route: 048
  13. PREPARATION H COOLING GEL [Concomitant]
     Active Substance: PHENYLEPHRINE HYDROCHLORIDE\WITCH HAZEL
     Dosage: UNK
     Dates: start: 20181201
  14. VOLTAREN [Concomitant]
     Active Substance: DICLOFENAC SODIUM
     Dosage: UNK
     Route: 061
  15. LYRICA [Suspect]
     Active Substance: PREGABALIN
     Indication: NEUROPATHY PERIPHERAL
     Dosage: UNK
     Dates: end: 201603
  16. BENADRYL [Concomitant]
     Active Substance: DIPHENHYDRAMINE HYDROCHLORIDE
     Dosage: UNK
     Route: 048
  17. CYMBALTA [Concomitant]
     Active Substance: DULOXETINE HYDROCHLORIDE
     Dosage: 60 MG, 2X/DAY
     Route: 048
  18. DECONGESTANT [Concomitant]
     Active Substance: UNSPECIFIED INGREDIENT
     Dosage: 2 DF, 2X/DAY
     Dates: start: 20181128
  19. FLEXERIL [Concomitant]
     Active Substance: CYCLOBENZAPRINE HYDROCHLORIDE
     Dosage: 10 MG, 3X/DAY
  20. FISH OIL [Concomitant]
     Active Substance: FISH OIL
     Dosage: 2400 MG, 2X/DAY (SOFT GEL)
     Route: 048
  21. AQUAPHOR HEALING [Concomitant]
     Active Substance: PETROLATUM
     Indication: SKIN DISCOMFORT
     Dosage: UNK
     Dates: start: 20160115
  22. CRANBERRY. [Concomitant]
     Active Substance: CRANBERRY
     Dosage: 500 MG, 1X/DAY
     Route: 048
  23. HYDROCODONE/ACETAMINOPHEN [Concomitant]
     Active Substance: ACETAMINOPHEN\HYDROCODONE
     Dosage: 1 DF, 3X/DAY (7.5-325MG)
     Route: 048
     Dates: start: 201701
  24. IMODIUM A-D [Concomitant]
     Active Substance: LOPERAMIDE HYDROCHLORIDE
     Dosage: UNK
     Route: 048
  25. IBUPROFEN. [Concomitant]
     Active Substance: IBUPROFEN
     Indication: ANALGESIC THERAPY
     Dosage: UNK
     Route: 048
  26. MUPIROCIN. [Concomitant]
     Active Substance: MUPIROCIN
     Dosage: UNK
     Dates: start: 20160627
  27. CRESTOR [Concomitant]
     Active Substance: ROSUVASTATIN CALCIUM
     Dosage: 20 MG, 1X/DAY
     Route: 048
  28. TUMS ANTACID [Concomitant]
     Indication: ANTACID THERAPY
     Dosage: UNK
     Route: 048
     Dates: start: 201801
  29. TYNELOL [Concomitant]
     Active Substance: ACETAMINOPHEN
     Indication: ANALGESIC THERAPY
     Dosage: 500 MG, UNK
     Route: 048
  30. GABAPENTIN. [Concomitant]
     Active Substance: GABAPENTIN
     Dosage: 200 MG, 3X/DAY
     Route: 048
     Dates: start: 201708
  31. AZELASTINE HCL [Concomitant]
     Active Substance: AZELASTINE HYDROCHLORIDE
     Dosage: 2 GTT, 2X/DAY
  32. AZELASTINE HYDROCHLORIDE. [Concomitant]
     Active Substance: AZELASTINE HYDROCHLORIDE
     Dosage: 274 UG, 2X/DAY
     Dates: start: 20170705
  33. BETAMETHASONE DIPROPIONATE/CLOTRIMAZOLE [Concomitant]
     Dosage: UNK
     Dates: start: 20150819
  34. BIOFREEZE PAIN RELIEVING [Concomitant]
     Active Substance: MENTHOL
     Indication: ANALGESIC THERAPY
     Dosage: UNK
  35. HYDROCORTISONE. [Concomitant]
     Active Substance: HYDROCORTISONE
     Dosage: UNK
     Dates: start: 20161028
  36. KETOCONAZOLE. [Concomitant]
     Active Substance: KETOCONAZOLE
     Dosage: UNK
     Dates: start: 20161028
  37. MELOXICAM. [Concomitant]
     Active Substance: MELOXICAM
     Dosage: 7.5 MG, 2X/DAY
  38. STOOL SOFTENER (DOCUSATE) [Concomitant]
     Active Substance: DOCUSATE
     Dosage: UNK
     Route: 048
     Dates: start: 20161215
  39. SUPHEDRINE [Concomitant]
     Active Substance: PSEUDOEPHEDRINE HYDROCHLORIDE
     Dosage: UNK
     Dates: start: 20161010
  40. TORADOL [Concomitant]
     Active Substance: KETOROLAC TROMETHAMINE
     Dosage: 7.5 MG, 2X/DAY
  41. CORTIZONE 10 [Concomitant]
     Active Substance: HYDROCORTISONE
     Indication: PRURITUS
     Dosage: UNK
  42. GENTLE LAXATIVE BISACODYL [Concomitant]
     Dosage: 5 MG, 2X/DAY
     Route: 048
     Dates: start: 20161215
  43. REQUIP [Concomitant]
     Active Substance: ROPINIROLE HYDROCHLORIDE
     Dosage: 2 MG, 3X/DAY
     Route: 048
  44. TOUJEO [Concomitant]
     Active Substance: INSULIN GLARGINE
     Dosage: UNK
     Dates: start: 20170601
  45. VENTOLINE [Concomitant]
     Active Substance: ALBUTEROL
     Dosage: 2 DF, 2X/DAY (2 PUFFS/EA NOSTRIL)
  46. VITAMIN B12 [Concomitant]
     Active Substance: CYANOCOBALAMIN
     Dosage: 2500 UG, 1X/DAY
     Route: 048
     Dates: start: 20180730
  47. LYRICA [Suspect]
     Active Substance: PREGABALIN
     Dosage: 200 MG, 3X/DAY
     Dates: start: 20181212
  48. AXERT [Concomitant]
     Active Substance: ALMOTRIPTAN MALATE
     Dosage: UNK (NO MORE THAN 6 A MONTH)
     Route: 048
  49. CLONAZEPAM. [Concomitant]
     Active Substance: CLONAZEPAM
     Dosage: 1 MG, 3X/DAY
     Route: 048
  50. DESITIN WITH ZINC OXIDE [Concomitant]
     Indication: RASH
     Dosage: UNK
     Dates: start: 20181010
  51. EMETROL [Concomitant]
     Active Substance: DEXTROSE\FRUCTOSE\PHOSPHORIC ACID
     Indication: NAUSEA
     Dosage: UNK
     Route: 048
  52. FLUTICASONE PROPIONATE. [Concomitant]
     Active Substance: FLUTICASONE PROPIONATE
     Dosage: 2 DF, 2X/DAY (2 PUFFS/EA NOSTRILS )
     Dates: start: 20170705
  53. LOTRIMIN AF ANTIFUNGAL [Concomitant]
     Active Substance: MICONAZOLE NITRATE
     Dosage: UNK
     Dates: start: 20150401
  54. TURMERIC [Concomitant]
     Active Substance: HERBALS\TURMERIC
     Dosage: 500 MG, 1X/DAY
     Route: 048
     Dates: start: 20160324

REACTIONS (6)
  - Headache [Recovered/Resolved]
  - Irregular sleep wake rhythm disorder [Recovered/Resolved]
  - Balance disorder [Unknown]
  - Intentional product misuse [Unknown]
  - Somnolence [Unknown]
  - Dizziness [Unknown]

NARRATIVE: CASE EVENT DATE: 19990711
